FAERS Safety Report 5244903-7 (Version None)
Quarter: 2007Q1

REPORT INFORMATION
  Report Type: 
  Country: None (occurrence: None)
  Receive Date: 20070221
  Receipt Date: 20070221
  Transmission Date: 20070707
  Serious: Yes (Hospitalization)
  Sender: FDA-Public Use
  Company Number: None

PATIENT
  Age: 68 Year
  Sex: Male
  Weight: 61.5 kg

DRUGS (2)
  1. ALIMTA [Suspect]
  2. CISPLATIN [Suspect]

REACTIONS (2)
  - COUGH [None]
  - DYSPNOEA [None]
